FAERS Safety Report 10164170 (Version 2)
Quarter: 2014Q2

REPORT INFORMATION
  Report Type: Spontaneous
  Country: US (occurrence: US)
  Receive Date: 20140510
  Receipt Date: 20140510
  Transmission Date: 20141212
  Serious: No
  Sender: FDA-Public Use
  Company Number: US-BRISTOL-MYERS SQUIBB COMPANY-20007803

PATIENT
  Age: 61 Year
  Sex: Male
  Weight: 108.84 kg

DRUGS (8)
  1. BYDUREON [Suspect]
     Indication: TYPE 2 DIABETES MELLITUS
     Route: 058
  2. METFORMIN HCL [Suspect]
  3. ACTOS [Suspect]
  4. FLONASE [Concomitant]
  5. METOPROLOL [Concomitant]
  6. DIOVAN HCT [Concomitant]
  7. LISINOPRIL [Concomitant]
  8. NORVASC [Concomitant]

REACTIONS (3)
  - Blood glucose fluctuation [Unknown]
  - Injection site pain [Unknown]
  - Weight decreased [Unknown]
